FAERS Safety Report 22283261 (Version 1)
Quarter: 2023Q2

REPORT INFORMATION
  Report Type: Spontaneous
  Country: US (occurrence: None)
  Receive Date: 20230430
  Receipt Date: 20230430
  Transmission Date: 20230722
  Serious: Yes (Disabling)
  Sender: FDA-Public Use
  Company Number: None

PATIENT
  Age: 35 Year
  Sex: Female
  Weight: 63.5 kg

DRUGS (7)
  1. MIRENA [Suspect]
     Active Substance: LEVONORGESTREL
     Dates: start: 20230306, end: 20230428
  2. SEROQUEL [Concomitant]
     Active Substance: QUETIAPINE FUMARATE
  3. SUBOXONE [Concomitant]
     Active Substance: BUPRENORPHINE HYDROCHLORIDE\NALOXONE HYDROCHLORIDE
  4. KLONOPIN [Concomitant]
     Active Substance: CLONAZEPAM
  5. GABAPENTIN [Concomitant]
     Active Substance: GABAPENTIN
  6. TYLENOL [Concomitant]
     Active Substance: ACETAMINOPHEN
  7. ALEVE [Concomitant]
     Active Substance: NAPROXEN SODIUM

REACTIONS (9)
  - Rheumatoid arthritis [None]
  - Pain in extremity [None]
  - Arthralgia [None]
  - Pain in extremity [None]
  - Dysstasia [None]
  - Pain [None]
  - Hypoaesthesia [None]
  - Muscle spasms [None]
  - Therapy cessation [None]

NARRATIVE: CASE EVENT DATE: 20230310
